FAERS Safety Report 8564506-6 (Version None)
Quarter: 2012Q3

REPORT INFORMATION
  Report Type: 
  Country: None (occurrence: None)
  Receive Date: 20120803
  Receipt Date: 20120724
  Transmission Date: 20120928
  Serious: Yes (Hospitalization, Other)
  Sender: FDA-Public Use
  Company Number: US-JNJFOC-20120711986

PATIENT
  Age: 66 Year
  Sex: Female
  Weight: 68.04 kg

DRUGS (3)
  1. EXTRA STRENGTH TYLENOL [Suspect]
     Indication: FIBROMYALGIA
     Dosage: 2 CAPLETS EVERY 4-6 HOURS
     Route: 048
     Dates: start: 19930101, end: 20060101
  2. UNSPECIFIED SLEEPING AGENTS [Concomitant]
     Indication: HYPERSOMNIA
     Dosage: AS NEEDED
     Route: 065
  3. XANAX [Concomitant]
     Indication: PANIC ATTACK
     Dosage: AS NEEDED
     Route: 065

REACTIONS (1)
  - HEPATIC CIRRHOSIS [None]
